FAERS Safety Report 4326322-0 (Version None)
Quarter: 2004Q1

REPORT INFORMATION
  Report Type: 
  Country: None (occurrence: None)
  Receive Date: 20040323
  Receipt Date: 20040309
  Transmission Date: 20041129
  Serious: Yes (Life-Threatening)
  Sender: FDA-Public Use
  Company Number: 04H-163-0252958-00

PATIENT
  Age: 3 Year
  Sex: Male

DRUGS (1)
  1. VECURONIUM BROMIDE [Suspect]
     Dosage: ONCE, INTRAVENOUS
     Route: 042

REACTIONS (4)
  - FEAR [None]
  - HYPOTONIA [None]
  - MEDICATION ERROR [None]
  - RESPIRATORY ARREST [None]
